FAERS Safety Report 24619182 (Version 2)
Quarter: 2024Q4

REPORT INFORMATION
  Report Type: Report from Study
  Country: US (occurrence: US)
  Receive Date: 20241114
  Receipt Date: 20241224
  Transmission Date: 20250115
  Serious: No
  Sender: BRISTOL-MYERS SQUIBB COMPANY
  Company Number: US-BRISTOL-MYERS SQUIBB COMPANY-2024-178328

PATIENT
  Age: 63 Year
  Sex: Female

DRUGS (5)
  1. ZEPOSIA [Suspect]
     Active Substance: OZANIMOD HYDROCHLORIDE
     Indication: Multiple sclerosis
     Route: 048
     Dates: start: 20241106
  2. ZEPOSIA [Suspect]
     Active Substance: OZANIMOD HYDROCHLORIDE
  3. ZEPOSIA [Suspect]
     Active Substance: OZANIMOD HYDROCHLORIDE
  4. LEVOTHYROXINE [Concomitant]
     Active Substance: LEVOTHYROXINE
     Indication: Thyroid disorder
  5. VITAMINS NOS [Concomitant]
     Active Substance: VITAMINS
     Indication: Arthralgia

REACTIONS (10)
  - Dry eye [Unknown]
  - Confusional state [Not Recovered/Not Resolved]
  - Pruritus [Recovered/Resolved]
  - Vision blurred [Unknown]
  - Neck pain [Unknown]
  - Diarrhoea [Recovered/Resolved]
  - Arthralgia [Unknown]
  - Bladder disorder [Unknown]
  - Product use issue [Unknown]
  - Headache [Recovered/Resolved]
